FAERS Safety Report 8738791 (Version 2)
Quarter: 2012Q4

REPORT INFORMATION
  Report Type: 
  Country: NL (occurrence: NL)
  Receive Date: 20120823
  Receipt Date: 20120928
  Transmission Date: 20130627
  Serious: Yes (Hospitalization, Other)
  Sender: FDA-Public Use
  Company Number: NL-PFIZER INC-2012176187

PATIENT
  Age: 62 Year
  Sex: Male

DRUGS (7)
  1. PERINDOPRIL [Suspect]
     Indication: HYPERTENSION
     Dosage: 4 mg, per day
     Route: 065
  2. FUROSEMIDE [Suspect]
     Indication: OEDEMA PERIPHERAL
     Dosage: 40 mg, per day
     Route: 065
  3. SPIRONOLACTONE [Suspect]
     Indication: HYPERTENSION
     Dosage: 50 mg, per day
     Route: 065
  4. LICORICE [Suspect]
     Indication: PRODUCT USED FOR UNKNOWN INDICATION
     Dosage: 300 mg, daily
     Route: 065
  5. SALMETEROL [Concomitant]
     Indication: PRODUCT USED FOR UNKNOWN INDICATION
     Dosage: UNK
     Route: 055
  6. FLUTICASONE [Concomitant]
     Indication: PRODUCT USED FOR UNKNOWN INDICATION
     Dosage: UNK
     Route: 055
  7. TIOTROPIUM [Concomitant]
     Indication: PRODUCT USED FOR UNKNOWN INDICATION
     Dosage: UNK
     Route: 055

REACTIONS (20)
  - Metabolic alkalosis [Recovered/Resolved]
  - Electrolyte depletion [Recovered/Resolved]
  - Emphysema [Unknown]
  - Respiratory acidosis [Unknown]
  - Hyperaldosteronism [Unknown]
  - Hypokalaemia [Recovered/Resolved]
  - Hypertension [Unknown]
  - Ventricular tachycardia [Unknown]
  - Dyspnoea [Unknown]
  - Oedema [Unknown]
  - Glomerular filtration rate decreased [Unknown]
  - Renin increased [Unknown]
  - Drug abuse [Unknown]
  - Alkalosis [Recovered/Resolved]
  - Blood albumin decreased [None]
  - Blood creatinine increased [None]
  - Blood sodium decreased [None]
  - Blood urea increased [None]
  - Blood potassium increased [None]
  - Incorrect dose administered [None]
